FAERS Safety Report 5840334-7 (Version None)
Quarter: 2008Q3

REPORT INFORMATION
  Report Type: 
  Country: None (occurrence: None)
  Receive Date: 20080811
  Receipt Date: 20080806
  Transmission Date: 20090109
  Serious: Yes (Hospitalization, Disabling, Other)
  Sender: FDA-Public Use
  Company Number: US-MERCK-0807USA05380

PATIENT
  Age: 61 Year
  Sex: Female

DRUGS (5)
  1. FOSAMAX [Suspect]
     Indication: OSTEOPOROSIS
     Route: 048
     Dates: start: 20020101, end: 20060101
  2. FOSAMAX PLUS D [Suspect]
     Route: 048
     Dates: start: 20060101
  3. TUMS [Concomitant]
     Route: 065
  4. CALCIUM (UNSPECIFIED) [Concomitant]
     Route: 065
  5. CENTRUM [Concomitant]
     Route: 065

REACTIONS (3)
  - BACK PAIN [None]
  - BONE DENSITY DECREASED [None]
  - PATELLA FRACTURE [None]
